FAERS Safety Report 8217596-4 (Version None)
Quarter: 2012Q1

REPORT INFORMATION
  Report Type: 
  Country: None (occurrence: None)
  Receive Date: 20120319
  Receipt Date: 20120319
  Transmission Date: 20120608
  Serious: No
  Sender: FDA-Public Use
  Company Number: None

PATIENT
  Age: 45 Day
  Sex: Female
  Weight: 61.234 kg

DRUGS (1)
  1. CHANTIX [Suspect]
     Indication: SMOKING CESSATION THERAPY
     Dosage: 1.0 MG
     Dates: start: 20120301, end: 20120317

REACTIONS (4)
  - DEPRESSION [None]
  - ANXIETY [None]
  - PANIC ATTACK [None]
  - NERVOUSNESS [None]
